FAERS Safety Report 11114726 (Version 12)
Quarter: 2017Q4

REPORT INFORMATION
  Report Type: Spontaneous
  Country: GB (occurrence: GB)
  Receive Date: 20150515
  Receipt Date: 20171011
  Transmission Date: 20180320
  Serious: Yes (Life-Threatening, Hospitalization, Disabling, Congenital Anomaly, Other)
  Sender: FDA-Public Use
  Company Number: GB-MERCK-1505GBR005321

PATIENT
  Age: 1 Hour
  Sex: Female
  Weight: 2.2 kg

DRUGS (104)
  1. NORVIR [Suspect]
     Active Substance: RITONAVIR
     Dosage: UNK
     Route: 064
  2. TRUVADA [Suspect]
     Active Substance: EMTRICITABINE\TENOFOVIR DISOPROXIL FUMARATE
     Indication: HIV INFECTION
     Dosage: UNK
     Route: 064
     Dates: start: 20070605, end: 20081023
  3. TRUVADA [Suspect]
     Active Substance: EMTRICITABINE\TENOFOVIR DISOPROXIL FUMARATE
     Dosage: UNK
     Route: 064
  4. NITROUS OXIDE. [Concomitant]
     Active Substance: NITROUS OXIDE
     Dosage: UNK MG, UNK
     Route: 065
  5. NOVORAPID [Concomitant]
     Active Substance: INSULIN ASPART
     Dosage: 200 MG, BID
     Route: 064
  6. ZIDOVUDINE. [Concomitant]
     Active Substance: ZIDOVUDINE
     Dosage: UNK
     Route: 064
  7. ENFUVIRTIDE. [Concomitant]
     Active Substance: ENFUVIRTIDE
     Dosage: UNK
     Route: 064
  8. ENFUVIRTIDE. [Concomitant]
     Active Substance: ENFUVIRTIDE
     Dosage: 25 MG, UNK
     Route: 064
  9. ENFUVIRTIDE. [Concomitant]
     Active Substance: ENFUVIRTIDE
     Dosage: 25 MG, UNK
  10. ENFUVIRTIDE. [Concomitant]
     Active Substance: ENFUVIRTIDE
     Dosage: UNKNOWN
  11. ENFUVIRTIDE. [Concomitant]
     Active Substance: ENFUVIRTIDE
     Dosage: 25 MG, UNK
  12. ENFUVIRTIDE. [Concomitant]
     Active Substance: ENFUVIRTIDE
     Dosage: UNKNOWN
     Route: 064
  13. ENFUVIRTIDE. [Concomitant]
     Active Substance: ENFUVIRTIDE
     Dosage: UNK
     Route: 064
  14. APTIVUS [Suspect]
     Active Substance: TIPRANAVIR
     Indication: HIV INFECTION
     Dosage: UNK
     Route: 064
  15. NITROUS OXIDE. [Concomitant]
     Active Substance: NITROUS OXIDE
     Dosage: 25 MG, UNK
     Route: 064
  16. NITROUS OXIDE. [Concomitant]
     Active Substance: NITROUS OXIDE
     Dosage: UNK
     Route: 065
  17. NOVORAPID [Concomitant]
     Active Substance: INSULIN ASPART
     Dosage: 200 MG, BID
     Route: 065
  18. NOVORAPID [Concomitant]
     Active Substance: INSULIN ASPART
     Dosage: UNK
     Route: 064
  19. ISENTRESS [Suspect]
     Active Substance: RALTEGRAVIR POTASSIUM
     Dosage: UNK
     Route: 064
  20. ISENTRESS [Suspect]
     Active Substance: RALTEGRAVIR POTASSIUM
     Dosage: UNK
     Route: 064
  21. APTIVUS [Suspect]
     Active Substance: TIPRANAVIR
     Dosage: 500 MG, BID
     Route: 064
     Dates: start: 20060905, end: 20081023
  22. INTELENCE [Suspect]
     Active Substance: ETRAVIRINE
     Indication: ANTIRETROVIRAL THERAPY
     Dosage: 500 MG, BID
     Route: 064
     Dates: start: 20081023
  23. INTELENCE [Suspect]
     Active Substance: ETRAVIRINE
     Dosage: 1000 MG, QID
     Route: 064
     Dates: start: 20081023
  24. INTELENCE [Suspect]
     Active Substance: ETRAVIRINE
     Dosage: 1000 MG, QID
     Route: 064
  25. NORVIR [Suspect]
     Active Substance: RITONAVIR
     Dosage: 200 MG, BID
     Route: 064
     Dates: start: 20060905, end: 20081022
  26. TRUVADA [Suspect]
     Active Substance: EMTRICITABINE\TENOFOVIR DISOPROXIL FUMARATE
     Dosage: UNK
     Route: 064
  27. NOVORAPID [Concomitant]
     Active Substance: INSULIN ASPART
     Dosage: UNK
  28. OXYGEN. [Concomitant]
     Active Substance: OXYGEN
     Indication: PRODUCT USED FOR UNKNOWN INDICATION
     Dosage: UNK
     Route: 064
  29. PREDNISOLONE. [Concomitant]
     Active Substance: PREDNISOLONE
     Dosage: 25 MG, UNK
     Route: 064
  30. ENFUVIRTIDE. [Concomitant]
     Active Substance: ENFUVIRTIDE
     Dosage: 25 MG, UNK
     Route: 064
  31. ENFUVIRTIDE. [Concomitant]
     Active Substance: ENFUVIRTIDE
     Dosage: UNK
     Route: 065
  32. ENFUVIRTIDE. [Concomitant]
     Active Substance: ENFUVIRTIDE
     Dosage: UNK
     Route: 064
  33. ENFUVIRTIDE. [Concomitant]
     Active Substance: ENFUVIRTIDE
     Dosage: UNK
     Route: 064
  34. ENFUVIRTIDE. [Concomitant]
     Active Substance: ENFUVIRTIDE
     Dosage: UNK
     Route: 064
  35. ENFUVIRTIDE. [Concomitant]
     Active Substance: ENFUVIRTIDE
     Dosage: UNK
     Route: 064
  36. ENFUVIRTIDE. [Concomitant]
     Active Substance: ENFUVIRTIDE
     Dosage: UNK
     Route: 065
  37. ENFUVIRTIDE. [Concomitant]
     Active Substance: ENFUVIRTIDE
     Dosage: UNK
     Route: 064
  38. PREZISTA [Suspect]
     Active Substance: DARUNAVIR ETHANOLATE
     Dosage: UNK
     Route: 064
  39. NITROUS OXIDE. [Concomitant]
     Active Substance: NITROUS OXIDE
     Dosage: 25 MG, UNK
     Route: 064
  40. NITROUS OXIDE. [Concomitant]
     Active Substance: NITROUS OXIDE
     Dosage: UNK
     Route: 065
  41. NOVORAPID [Concomitant]
     Active Substance: INSULIN ASPART
     Dosage: 200 MG, BID
     Route: 064
  42. NOVORAPID [Concomitant]
     Active Substance: INSULIN ASPART
     Dosage: 200 MG, BID
     Route: 065
  43. NOVORAPID [Concomitant]
     Active Substance: INSULIN ASPART
     Dosage: 200 MG, BID
     Route: 064
  44. PREDNISOLONE. [Concomitant]
     Active Substance: PREDNISOLONE
     Dosage: UNK
     Route: 064
  45. ENFUVIRTIDE. [Concomitant]
     Active Substance: ENFUVIRTIDE
     Indication: PRODUCT USED FOR UNKNOWN INDICATION
     Dosage: UNKNOWN
     Route: 064
  46. ENFUVIRTIDE. [Concomitant]
     Active Substance: ENFUVIRTIDE
     Dosage: UNK
     Route: 064
  47. ENFUVIRTIDE. [Concomitant]
     Active Substance: ENFUVIRTIDE
     Dosage: 25 MG, UNK
  48. ETRAVIRINE [Suspect]
     Active Substance: ETRAVIRINE
     Indication: PRODUCT USED FOR UNKNOWN INDICATION
     Dosage: 1000 MG, QID
     Route: 064
     Dates: start: 20081023
  49. NOVORAPID [Concomitant]
     Active Substance: INSULIN ASPART
     Dosage: UNK
     Route: 064
  50. PREDNISOLONE. [Concomitant]
     Active Substance: PREDNISOLONE
     Indication: PRODUCT USED FOR UNKNOWN INDICATION
     Dosage: UNK
     Route: 064
  51. ZIDOVUDINE. [Concomitant]
     Active Substance: ZIDOVUDINE
     Dosage: UNK
     Route: 064
  52. ENFUVIRTIDE. [Concomitant]
     Active Substance: ENFUVIRTIDE
     Dosage: 25 MG, UNK
  53. ENFUVIRTIDE. [Concomitant]
     Active Substance: ENFUVIRTIDE
     Dosage: 25 MG, UNK
     Route: 064
  54. ENFUVIRTIDE. [Concomitant]
     Active Substance: ENFUVIRTIDE
     Dosage: UNK
     Route: 064
  55. ENFUVIRTIDE. [Concomitant]
     Active Substance: ENFUVIRTIDE
     Dosage: UNK
     Route: 064
  56. ENFUVIRTIDE. [Concomitant]
     Active Substance: ENFUVIRTIDE
     Dosage: UNK MG, UNK
     Route: 065
  57. ENFUVIRTIDE. [Concomitant]
     Active Substance: ENFUVIRTIDE
     Dosage: UNK
     Route: 064
  58. ENFUVIRTIDE. [Concomitant]
     Active Substance: ENFUVIRTIDE
     Dosage: UNK
     Route: 065
  59. ENFUVIRTIDE. [Concomitant]
     Active Substance: ENFUVIRTIDE
     Dosage: UNK
     Route: 064
  60. ISENTRESS [Suspect]
     Active Substance: RALTEGRAVIR POTASSIUM
     Indication: HIV INFECTION
     Dosage: UNK
     Route: 064
  61. ETRAVIRINE [Suspect]
     Active Substance: ETRAVIRINE
     Dosage: 1000 MG, QID
     Route: 064
     Dates: start: 20081023
  62. PREZISTA [Suspect]
     Active Substance: DARUNAVIR ETHANOLATE
     Dosage: UNK
     Route: 064
  63. NITROUS OXIDE. [Concomitant]
     Active Substance: NITROUS OXIDE
     Dosage: UNK
     Route: 065
  64. NOVORAPID [Concomitant]
     Active Substance: INSULIN ASPART
     Dosage: UNK
  65. NOVORAPID [Concomitant]
     Active Substance: INSULIN ASPART
     Dosage: 200 MG, BID
     Route: 065
  66. PREDNISOLONE. [Concomitant]
     Active Substance: PREDNISOLONE
     Dosage: 25 MG, UNK
     Route: 064
  67. ENFUVIRTIDE. [Concomitant]
     Active Substance: ENFUVIRTIDE
     Dosage: 25 MG, UNK
     Route: 064
  68. ENFUVIRTIDE. [Concomitant]
     Active Substance: ENFUVIRTIDE
     Dosage: UNKNOWN
  69. ENFUVIRTIDE. [Concomitant]
     Active Substance: ENFUVIRTIDE
     Dosage: UNK
     Route: 064
  70. ENFUVIRTIDE. [Concomitant]
     Active Substance: ENFUVIRTIDE
     Dosage: UNK
     Route: 065
  71. ENFUVIRTIDE. [Concomitant]
     Active Substance: ENFUVIRTIDE
     Dosage: UNK
     Route: 065
  72. ENFUVIRTIDE. [Concomitant]
     Active Substance: ENFUVIRTIDE
     Dosage: UNK
     Route: 065
  73. ISENTRESS [Suspect]
     Active Substance: RALTEGRAVIR POTASSIUM
     Dosage: 400 MG, BID
     Route: 064
     Dates: start: 20081023, end: 20090221
  74. APTIVUS [Suspect]
     Active Substance: TIPRANAVIR
  75. PREZISTA [Suspect]
     Active Substance: DARUNAVIR ETHANOLATE
     Indication: HIV INFECTION
     Dosage: 1200 MG
     Route: 064
     Dates: start: 20081023
  76. NITROUS OXIDE. [Concomitant]
     Active Substance: NITROUS OXIDE
     Indication: PRODUCT USED FOR UNKNOWN INDICATION
     Dosage: UNK
     Route: 064
  77. NOVORAPID [Concomitant]
     Active Substance: INSULIN ASPART
     Indication: GESTATIONAL DIABETES
     Dosage: UNK
     Route: 064
  78. NOVORAPID [Concomitant]
     Active Substance: INSULIN ASPART
     Dosage: UNK
     Route: 064
  79. ZIDOVUDINE. [Concomitant]
     Active Substance: ZIDOVUDINE
     Dosage: UNK
     Route: 064
  80. ENFUVIRTIDE. [Concomitant]
     Active Substance: ENFUVIRTIDE
     Dosage: UNK MG, UNK
     Route: 065
  81. ENFUVIRTIDE. [Concomitant]
     Active Substance: ENFUVIRTIDE
     Dosage: UNK
     Route: 065
  82. ENFUVIRTIDE. [Concomitant]
     Active Substance: ENFUVIRTIDE
     Dosage: UNK
     Route: 065
  83. ENFUVIRTIDE. [Concomitant]
     Active Substance: ENFUVIRTIDE
     Dosage: UNK
     Route: 065
  84. ENFUVIRTIDE. [Concomitant]
     Active Substance: ENFUVIRTIDE
     Dosage: UNK
     Route: 065
  85. ENFUVIRTIDE. [Concomitant]
     Active Substance: ENFUVIRTIDE
     Dosage: UNK
     Route: 065
  86. ENFUVIRTIDE. [Concomitant]
     Active Substance: ENFUVIRTIDE
     Dosage: UNK
     Route: 065
  87. ENFUVIRTIDE. [Concomitant]
     Active Substance: ENFUVIRTIDE
     Dosage: 25 MG, UNK
     Route: 064
  88. ENFUVIRTIDE. [Concomitant]
     Active Substance: ENFUVIRTIDE
     Dosage: UNK
     Route: 065
  89. ENFUVIRTIDE. [Concomitant]
     Active Substance: ENFUVIRTIDE
     Dosage: 25 MG, UNK
     Route: 064
  90. ENFUVIRTIDE. [Concomitant]
     Active Substance: ENFUVIRTIDE
     Dosage: UNK
     Route: 064
  91. ENFUVIRTIDE. [Concomitant]
     Active Substance: ENFUVIRTIDE
     Dosage: UNK
     Route: 065
  92. ENFUVIRTIDE. [Concomitant]
     Active Substance: ENFUVIRTIDE
     Dosage: UNK MG, UNK
     Route: 065
  93. ENFUVIRTIDE. [Concomitant]
     Active Substance: ENFUVIRTIDE
     Dosage: UNK
     Route: 064
  94. ETRAVIRINE [Suspect]
     Active Substance: ETRAVIRINE
     Dosage: 400 MG, BID
     Route: 064
     Dates: start: 20081023, end: 20090221
  95. NORVIR [Suspect]
     Active Substance: RITONAVIR
     Indication: HIV INFECTION
     Dosage: 100 MG, BID
     Route: 064
     Dates: start: 20081023
  96. PREZISTA [Suspect]
     Active Substance: DARUNAVIR ETHANOLATE
     Dosage: UNK
     Route: 064
  97. NITROUS OXIDE. [Concomitant]
     Active Substance: NITROUS OXIDE
     Dosage: UNK
     Route: 065
  98. NITROUS OXIDE. [Concomitant]
     Active Substance: NITROUS OXIDE
     Dosage: UNK
     Route: 064
  99. NITROUS OXIDE. [Concomitant]
     Active Substance: NITROUS OXIDE
     Dosage: UNK
     Route: 065
  100. NOVORAPID [Concomitant]
     Active Substance: INSULIN ASPART
     Dosage: 200 MG, BID
     Route: 065
  101. NOVORAPID [Concomitant]
     Active Substance: INSULIN ASPART
     Dosage: 200 MG, BID
     Route: 064
  102. ENFUVIRTIDE. [Concomitant]
     Active Substance: ENFUVIRTIDE
     Dosage: UNK
     Route: 064
  103. ENFUVIRTIDE. [Concomitant]
     Active Substance: ENFUVIRTIDE
     Dosage: UNK
     Route: 065
  104. ENFUVIRTIDE. [Concomitant]
     Active Substance: ENFUVIRTIDE
     Dosage: UNK
     Route: 064

REACTIONS (25)
  - Genitalia external ambiguous [Recovered/Resolved with Sequelae]
  - Erythema [Recovered/Resolved]
  - Spine malformation [Recovered/Resolved with Sequelae]
  - Caudal regression syndrome [Recovered/Resolved with Sequelae]
  - Gastrointestinal malformation [Unknown]
  - Lipodystrophy acquired [Unknown]
  - Foetal exposure during pregnancy [Recovered/Resolved]
  - Gastrointestinal disorder congenital [Unknown]
  - Bladder agenesis [Recovered/Resolved with Sequelae]
  - Blood iron decreased [Recovered/Resolved]
  - Umbilical cord abnormality [Recovered/Resolved with Sequelae]
  - Premature baby [Recovered/Resolved]
  - Exomphalos [Recovered/Resolved with Sequelae]
  - Musculoskeletal deformity [Recovered/Resolved with Sequelae]
  - Anal atresia [Recovered/Resolved with Sequelae]
  - Sepsis [Recovered/Resolved]
  - Gastrointestinal disorder congenital [Recovered/Resolved with Sequelae]
  - Meconium stain [Recovered/Resolved with Sequelae]
  - Meningomyelocele [Recovered/Resolved with Sequelae]
  - Tethered cord syndrome [Recovered/Resolved with Sequelae]
  - Cloacal exstrophy [Recovered/Resolved with Sequelae]
  - Congenital anomaly [Unknown]
  - Congenital genital malformation [Recovered/Resolved with Sequelae]
  - Musculoskeletal discomfort [Recovered/Resolved with Sequelae]
  - Foetal exposure during pregnancy [Recovered/Resolved]

NARRATIVE: CASE EVENT DATE: 20080616
